FAERS Safety Report 7369112-7 (Version None)
Quarter: 2011Q1

REPORT INFORMATION
  Report Type: 
  Country: None (occurrence: None)
  Receive Date: 20110323
  Receipt Date: 20110318
  Transmission Date: 20110831
  Serious: Yes (Hospitalization, Other)
  Sender: FDA-Public Use
  Company Number: US-ROCHE-714517

PATIENT
  Sex: Male
  Weight: 117.9 kg

DRUGS (2)
  1. ACCUTANE [Suspect]
     Indication: ACNE
     Route: 048
     Dates: start: 19960901, end: 19970301
  2. ACCUTANE [Suspect]
     Route: 048
     Dates: start: 19990601, end: 19991101

REACTIONS (7)
  - COLITIS ULCERATIVE [None]
  - SUICIDAL IDEATION [None]
  - DEPRESSION [None]
  - SMALL INTESTINAL OBSTRUCTION [None]
  - INTESTINAL ANASTOMOSIS COMPLICATION [None]
  - INFLAMMATORY BOWEL DISEASE [None]
  - CHAPPED LIPS [None]
